FAERS Safety Report 21334981 (Version 2)
Quarter: 2022Q4

REPORT INFORMATION
  Report Type: Spontaneous
  Country: US (occurrence: US)
  Receive Date: 20220914
  Receipt Date: 20221014
  Transmission Date: 20230113
  Serious: Yes (Hospitalization, Other)
  Sender: FDA-Public Use
  Company Number: US-BRISTOL-MYERS SQUIBB COMPANY-2022-105936

PATIENT
  Age: 77 Year
  Sex: Female

DRUGS (3)
  1. REVLIMID [Suspect]
     Active Substance: LENALIDOMIDE
     Indication: Plasma cell myeloma
     Dosage: TAKE 1 CAPSULE BY MOUTH DAILY ON DAYS 1THROUGH 14 OF EACH 28 DAY CYCLE.
     Route: 048
     Dates: start: 20181016
  2. DARATUMUMAB [Concomitant]
     Active Substance: DARATUMUMAB
  3. ALLEGRA-D 24 HOUR [Concomitant]
     Active Substance: FEXOFENADINE HYDROCHLORIDE\PSEUDOEPHEDRINE HYDROCHLORIDE
     Indication: Plasma cell myeloma
     Route: 048

REACTIONS (4)
  - Multiple fractures [Unknown]
  - Upper limb fracture [Unknown]
  - Off label use [Unknown]
  - Fall [Unknown]
